FAERS Safety Report 5166300-5 (Version None)
Quarter: 2006Q4

REPORT INFORMATION
  Report Type: 
  Country: None (occurrence: None)
  Receive Date: 20061129
  Receipt Date: 20061117
  Transmission Date: 20070319
  Serious: Yes (Life-Threatening, Hospitalization)
  Sender: FDA-Public Use
  Company Number: 002#2#2006-00317

PATIENT
  Age: 72 Year
  Sex: Female

DRUGS (6)
  1. COLYTE [Suspect]
     Indication: COLONOSCOPY
     Dosage: 41, 1ONCE, ORAL
     Route: 048
     Dates: start: 20061101, end: 20061101
  2. COLYTE [Suspect]
     Indication: PREOPERATIVE CARE
     Dosage: 41, 1ONCE, ORAL
     Route: 048
     Dates: start: 20061101, end: 20061101
  3. POTASSIUM ACETATE [Concomitant]
  4. STEROIDS [Concomitant]
  5. FUROSEMIDE [Concomitant]
  6. MANY CONCOMITANT DRUGS [Concomitant]

REACTIONS (8)
  - CARDIAC ARREST [None]
  - CARDIAC FAILURE CONGESTIVE [None]
  - COLONIC POLYP [None]
  - CONCOMITANT DISEASE AGGRAVATED [None]
  - FLUID OVERLOAD [None]
  - HAEMORRHOIDS [None]
  - LUNG INFECTION [None]
  - RESPIRATORY FAILURE [None]
